FAERS Safety Report 6368013-0 (Version None)
Quarter: 2009Q3

REPORT INFORMATION
  Report Type: 
  Country: None (occurrence: None)
  Receive Date: 20090922
  Receipt Date: 20090914
  Transmission Date: 20100115
  Serious: Yes (Other)
  Sender: FDA-Public Use
  Company Number: US-JNJFOC-20090904787

PATIENT
  Age: 65 Year
  Sex: Male

DRUGS (2)
  1. INVEGA [Suspect]
     Indication: BIPOLAR DISORDER
     Route: 048
  2. LEXAPRO [Concomitant]
     Indication: BIPOLAR DISORDER

REACTIONS (2)
  - RENAL IMPAIRMENT [None]
  - SEDATION [None]
